FAERS Safety Report 15420109 (Version 1)
Quarter: 2018Q3

REPORT INFORMATION
  Report Type: Spontaneous
  Country: NL (occurrence: NL)
  Receive Date: 20180924
  Receipt Date: 20180924
  Transmission Date: 20181010
  Serious: Yes (Other)
  Sender: FDA-Public Use
  Company Number: PHHY2018NL104784

PATIENT
  Age: 34 Year
  Sex: Male

DRUGS (2)
  1. CYPROTERONE [Suspect]
     Active Substance: CYPROTERONE
     Indication: TRANSGENDER HORMONAL THERAPY
     Route: 065
  2. ESTRADIOL. [Suspect]
     Active Substance: ESTRADIOL
     Indication: TRANSGENDER HORMONAL THERAPY
     Route: 065

REACTIONS (1)
  - Non-secretory adenoma of pituitary [Unknown]
